FAERS Safety Report 16374559 (Version 2)
Quarter: 2019Q2

REPORT INFORMATION
  Report Type: Spontaneous
  Country: IT (occurrence: IT)
  Receive Date: 20190530
  Receipt Date: 20190620
  Transmission Date: 20190711
  Serious: Yes (Hospitalization, Other)
  Sender: FDA-Public Use
  Company Number: IT-TAKEDA-2019TEU006379

PATIENT
  Age: 33 Year
  Sex: Male

DRUGS (2)
  1. SODIUM ALGINATE [Suspect]
     Active Substance: SODIUM ALGINATE
     Indication: HIATUS HERNIA
     Dosage: UNK
     Route: 065
     Dates: start: 2017
  2. LANSOPRAZOLE. [Suspect]
     Active Substance: LANSOPRAZOLE
     Indication: HIATUS HERNIA
     Dosage: 30 MILLIGRAM, QD
     Route: 065
     Dates: start: 2017

REACTIONS (3)
  - Product use in unapproved indication [Unknown]
  - Off label use [Unknown]
  - Gitelman^s syndrome [Unknown]
